FAERS Safety Report 10088062 (Version 4)
Quarter: 2014Q2

REPORT INFORMATION
  Report Type: Spontaneous
  Country: JP (occurrence: JP)
  Receive Date: 20140421
  Receipt Date: 20140520
  Transmission Date: 20141212
  Serious: Yes (Hospitalization, Other)
  Sender: FDA-Public Use
  Company Number: JP-ROCHE-1382504

PATIENT
  Age: 77 Year
  Sex: Female
  Weight: 43 kg

DRUGS (15)
  1. MIRCERA [Suspect]
     Indication: NEPHROGENIC ANAEMIA
     Route: 058
     Dates: start: 20130318, end: 20130513
  2. MIRCERA [Suspect]
     Indication: NEPHROGENIC ANAEMIA
     Route: 058
     Dates: start: 20130610, end: 20130610
  3. MIRCERA [Suspect]
     Indication: NEPHROGENIC ANAEMIA
     Route: 058
     Dates: start: 20130720, end: 20130820
  4. MIRCERA [Suspect]
     Indication: NEPHROGENIC ANAEMIA
     Route: 042
     Dates: start: 20130924, end: 20130924
  5. MIRCERA [Suspect]
     Indication: NEPHROGENIC ANAEMIA
     Route: 042
     Dates: start: 20131008, end: 20131008
  6. MIRCERA [Suspect]
     Indication: NEPHROGENIC ANAEMIA
     Route: 042
     Dates: start: 20131022, end: 201402
  7. MIRCERA [Suspect]
     Indication: NEPHROGENIC ANAEMIA
     Route: 042
     Dates: start: 20140311
  8. BAYASPIRIN [Concomitant]
     Route: 048
  9. RABEPRAZOLE [Concomitant]
     Route: 048
     Dates: start: 20140201
  10. FUROSEMIDE [Concomitant]
     Route: 048
  11. ARTIST [Concomitant]
     Route: 048
     Dates: start: 20140201
  12. WARFARIN [Concomitant]
     Route: 048
  13. LIPITOR [Concomitant]
     Route: 048
     Dates: start: 20140201
  14. ALLELOCK [Concomitant]
     Route: 048
     Dates: start: 20131010
  15. MIRCERA [Suspect]
     Indication: NEPHROGENIC ANAEMIA
     Route: 058
     Dates: start: 20130218, end: 20130218

REACTIONS (2)
  - Cardiac failure [Recovering/Resolving]
  - Myelodysplastic syndrome [Recovering/Resolving]
